FAERS Safety Report 11030500 (Version 1)
Quarter: 2015Q2

REPORT INFORMATION
  Report Type: Spontaneous
  Country: US (occurrence: US)
  Receive Date: 20150415
  Receipt Date: 20150415
  Transmission Date: 20150821
  Serious: Yes (Other)
  Sender: FDA-Public Use
  Company Number: US-JNJFOC-20140116524

PATIENT
  Age: 5 Year
  Sex: Female
  Weight: 29.48 kg

DRUGS (1)
  1. CHILDRENS BENADRYL ALLERGY CHERRY FLAVORED [Suspect]
     Active Substance: DIPHENHYDRAMINE HYDROCHLORIDE
     Indication: ALLERGY TO ARTHROPOD BITE
     Route: 048

REACTIONS (5)
  - Communication disorder [Recovered/Resolved]
  - Lethargy [Recovered/Resolved]
  - Pupil fixed [Recovered/Resolved]
  - Adverse drug reaction [Recovered/Resolved]
  - Abnormal behaviour [Recovered/Resolved]

NARRATIVE: CASE EVENT DATE: 20140123
